FAERS Safety Report 10931901 (Version 3)
Quarter: 2020Q2

REPORT INFORMATION
  Report Type: Report from Study
  Country: IT (occurrence: IT)
  Receive Date: 20150319
  Receipt Date: 20200618
  Transmission Date: 20200713
  Serious: Yes (Disabling)
  Sender: FDA-Public Use
  Company Number: IT-BIOMARINAP-IT-2015-105795

PATIENT
  Age: 9 Year
  Sex: Male
  Weight: 17.5 kg

DRUGS (1)
  1. NAGLAZYME [Suspect]
     Active Substance: GALSULFASE
     Indication: MUCOPOLYSACCHARIDOSIS VI
     Dosage: 1 MG/KG, QW
     Route: 042
     Dates: start: 20060207

REACTIONS (1)
  - Cervical cord compression [Recovering/Resolving]

NARRATIVE: CASE EVENT DATE: 20110405
